FAERS Safety Report 6377197-X (Version None)
Quarter: 2009Q3

REPORT INFORMATION
  Report Type: 
  Country: None (occurrence: None)
  Receive Date: 20090925
  Receipt Date: 20090921
  Transmission Date: 20100115
  Serious: Yes (Death, Life-Threatening, Hospitalization, Disabling)
  Sender: FDA-Public Use
  Company Number: A0797835A

PATIENT
  Age: 68 Year
  Sex: Female
  Weight: 94.1 kg

DRUGS (7)
  1. TYKERB [Suspect]
     Indication: DRUG USE FOR UNKNOWN INDICATION
     Dosage: 250MG UNKNOWN
     Route: 048
     Dates: end: 20090527
  2. CARBOPLATIN [Suspect]
     Indication: DRUG USE FOR UNKNOWN INDICATION
     Route: 042
     Dates: start: 20090318, end: 20090527
  3. TAXOL [Suspect]
     Indication: DRUG USE FOR UNKNOWN INDICATION
     Route: 042
     Dates: start: 20090318, end: 20090527
  4. CHEMOTHERAPY [Concomitant]
  5. AVASTIN (SIMVASTATIN) [Concomitant]
     Dates: start: 20090701
  6. IXEMPRA KIT [Concomitant]
     Dates: start: 20090701
  7. XELODA [Concomitant]

REACTIONS (3)
  - HEPATIC LESION [None]
  - MALIGNANT NEOPLASM PROGRESSION [None]
  - METASTASES TO PERITONEUM [None]
